FAERS Safety Report 4506251-X (Version None)
Quarter: 2004Q4

REPORT INFORMATION
  Report Type: 
  Country: None (occurrence: None)
  Receive Date: 20041025
  Receipt Date: 20040730
  Transmission Date: 20050328
  Serious: Yes (Death, Hospitalization)
  Sender: FDA-Public Use
  Company Number: US-JNJFOC-20040605481

PATIENT
  Age: 70 Year
  Sex: Male

DRUGS (7)
  1. REMICADE [Suspect]
     Indication: RHEUMATOID ARTHRITIS
     Dosage: 5 MG/KG, 1 IN 2 MONTH
     Dates: start: 20010401
  2. CORDARONE [Concomitant]
  3. LESCOL [Concomitant]
  4. COUMADIN (WARARIN SODIUM) [Concomitant]
  5. ANTIHISTAMINES (ANTIHISAMINES) [Concomitant]
  6. ZYRTEC [Concomitant]
  7. BENADRYL [Concomitant]

REACTIONS (1)
  - PNEUMONIA STREPTOCOCCAL [None]
